FAERS Safety Report 5066902-0 (Version None)
Quarter: 2006Q3

REPORT INFORMATION
  Report Type: 
  Country: None (occurrence: None)
  Receive Date: 20060801
  Receipt Date: 20060721
  Transmission Date: 20061208
  Serious: Yes (Other)
  Sender: FDA-Public Use
  Company Number: US-JNJFOC-20060603585

PATIENT
  Sex: Female
  Weight: 74.84 kg

DRUGS (14)
  1. REMICADE [Suspect]
  2. REMICADE [Suspect]
  3. REMICADE [Suspect]
  4. REMICADE [Suspect]
  5. REMICADE [Suspect]
     Indication: PSORIATIC ARTHROPATHY
  6. PREMARIN [Concomitant]
  7. MULTI-VITAMIN [Concomitant]
  8. LEXAPRO [Concomitant]
  9. WELLBUTRIN [Concomitant]
  10. DOVONEX [Concomitant]
  11. TEMOVATE [Concomitant]
  12. MOTRIN [Concomitant]
  13. ZOMIG [Concomitant]
  14. CALCIUM GLUCONATE [Concomitant]

REACTIONS (6)
  - ANTINUCLEAR ANTIBODY POSITIVE [None]
  - LIVER FUNCTION TEST ABNORMAL [None]
  - PANCYTOPENIA [None]
  - POLYARTHRITIS [None]
  - PSORIASIS [None]
  - RHEUMATOID FACTOR POSITIVE [None]
